FAERS Safety Report 25110654 (Version 1)
Quarter: 2025Q1

REPORT INFORMATION
  Report Type: Spontaneous
  Country: US (occurrence: US)
  Receive Date: 20250324
  Receipt Date: 20250324
  Transmission Date: 20250409
  Serious: No
  Sender: BRISTOL-MYERS SQUIBB COMPANY
  Company Number: US-BRISTOL-MYERS SQUIBB COMPANY-2025-043177

PATIENT
  Age: 70 Year
  Sex: Female

DRUGS (1)
  1. SOTYKTU [Suspect]
     Active Substance: DEUCRAVACITINIB
     Indication: Psoriasis
     Route: 048
     Dates: start: 202502

REACTIONS (4)
  - Pain in extremity [Unknown]
  - Skin burning sensation [Unknown]
  - Decreased appetite [Unknown]
  - Arthralgia [Unknown]

NARRATIVE: CASE EVENT DATE: 20241101
